FAERS Safety Report 6131352-2 (Version None)
Quarter: 2009Q1

REPORT INFORMATION
  Report Type: 
  Country: None (occurrence: None)
  Receive Date: 20090325
  Receipt Date: 20080401
  Transmission Date: 20090719
  Serious: No
  Sender: FDA-Public Use
  Company Number: US-BRISTOL-MYERS SQUIBB COMPANY-14133409

PATIENT
  Sex: Female

DRUGS (4)
  1. ERBITUX [Suspect]
  2. LEUCOVORIN CALCIUM [Suspect]
  3. FLUOROURACIL [Suspect]
  4. OXALIPLATIN [Suspect]

REACTIONS (1)
  - NAUSEA [None]
